FAERS Safety Report 4420571-9 (Version None)
Quarter: 2004Q3

REPORT INFORMATION
  Report Type: 
  Country: None (occurrence: None)
  Receive Date: 20040809
  Receipt Date: 20040401
  Transmission Date: 20050211
  Serious: No
  Sender: FDA-Public Use
  Company Number: US-GLAXOSMITHKLINE-A0505580A

PATIENT
  Sex: Male

DRUGS (2)
  1. PAXIL CR [Suspect]
     Indication: DEPRESSION
     Dosage: 25MG PER DAY
     Route: 048
     Dates: start: 20040101, end: 20040322
  2. PRILOSEC [Concomitant]

REACTIONS (4)
  - ANGER [None]
  - ANXIETY [None]
  - PARAESTHESIA [None]
  - SLEEP DISORDER [None]
